FAERS Safety Report 13568739 (Version 1)
Quarter: 2017Q2

REPORT INFORMATION
  Report Type: Spontaneous
  Country: US (occurrence: US)
  Receive Date: 20170522
  Receipt Date: 20170522
  Transmission Date: 20170830
  Serious: No
  Sender: FDA-Public Use
  Company Number: US-COLLEGIUM PHARMACEUTICAL, INC.-2017CGM00015

PATIENT

DRUGS (2)
  1. XTAMPZA ER [Suspect]
     Active Substance: OXYCODONE
     Dosage: 1 CAPSULES, 2X/DAY
  2. XTAMPZA ER [Suspect]
     Active Substance: OXYCODONE
     Dosage: 1 CAPSULES, 1X/DAY

REACTIONS (1)
  - Constipation [Unknown]
